FAERS Safety Report 9459439 (Version 1)
Quarter: 2013Q3

REPORT INFORMATION
  Report Type: Spontaneous
  Country: US (occurrence: US)
  Receive Date: 20130815
  Receipt Date: 20130815
  Transmission Date: 20140515
  Serious: Yes (Other)
  Sender: FDA-Public Use
  Company Number: US-ROCHE-1261114

PATIENT
  Age: 71 Year
  Sex: Male

DRUGS (1)
  1. KLONOPIN [Suspect]
     Indication: PAIN
     Route: 048

REACTIONS (3)
  - Syncope [Unknown]
  - Presyncope [Unknown]
  - Drug effect decreased [Unknown]
